FAERS Safety Report 12161981 (Version 1)
Quarter: 2016Q1

REPORT INFORMATION
  Report Type: Report from Study
  Country: CA (occurrence: CA)
  Receive Date: 20160309
  Receipt Date: 20160309
  Transmission Date: 20160526
  Serious: Yes (Hospitalization, Other)
  Sender: FDA-Public Use
  Company Number: CA-AMGEN-CANSL2016023460

PATIENT
  Age: 83 Year
  Sex: Female

DRUGS (2)
  1. OMEPRAZOLE. [Concomitant]
     Active Substance: OMEPRAZOLE
     Dosage: 20MG/DAY
  2. ENBREL [Suspect]
     Active Substance: ETANERCEPT
     Indication: RHEUMATOID ARTHRITIS
     Dosage: 50 MG, UNK
     Route: 065
     Dates: start: 20101115

REACTIONS (5)
  - Eczema [Unknown]
  - Vomiting [Recovered/Resolved]
  - Gastroenteritis viral [Recovered/Resolved]
  - Asthenia [Unknown]
  - Eye infection [Unknown]

NARRATIVE: CASE EVENT DATE: 20160218
